FAERS Safety Report 12936262 (Version 1)
Quarter: 2016Q4

REPORT INFORMATION
  Report Type: Spontaneous
  Country: IT (occurrence: IT)
  Receive Date: 20161114
  Receipt Date: 20161114
  Transmission Date: 20170207
  Serious: Yes (Other)
  Sender: FDA-Public Use
  Company Number: IT-BAYER-2016-210320

PATIENT
  Age: 82 Year
  Sex: Male

DRUGS (3)
  1. CIPROXIN 500 MG FILM-COATED TABLETS [Suspect]
     Active Substance: CIPROFLOXACIN
     Indication: CHRONIC OBSTRUCTIVE PULMONARY DISEASE
     Dosage: DAILY DOSE 1000 MG
     Route: 048
     Dates: start: 20161014, end: 20161022
  2. FLUXUM [Concomitant]
     Active Substance: PARNAPARIN SODIUM
     Dosage: UNK
     Route: 058
     Dates: start: 20161014, end: 20161022
  3. KCL-RETARD [Concomitant]
     Active Substance: POTASSIUM CHLORIDE
     Dosage: DAILY DOSE 600 MG
     Route: 048
     Dates: start: 20161014, end: 20161022

REACTIONS (1)
  - Chronic kidney disease [Recovering/Resolving]

NARRATIVE: CASE EVENT DATE: 20161022
